FAERS Safety Report 14430621 (Version 2)
Quarter: 2018Q1

REPORT INFORMATION
  Report Type: Report from Study
  Country: US (occurrence: US)
  Receive Date: 20180124
  Receipt Date: 20180215
  Transmission Date: 20180509
  Serious: Yes (Other)
  Sender: FDA-Public Use
  Company Number: US-KADMON PHARMACEUTICALS, LLC-KAD201612-004590

PATIENT
  Age: 60 Year
  Sex: Male

DRUGS (2)
  1. RIBAVIRIN. [Suspect]
     Active Substance: RIBAVIRIN
     Indication: HEPATITIS C
     Dosage: TABLET
     Route: 048
     Dates: start: 20160518, end: 20160713
  2. VIEKIRA PAK [Suspect]
     Active Substance: DASABUVIR\OMBITASVIR\PARITAPREVIR\RITONAVIR
     Indication: HEPATITIS C
     Dosage: TABLET
     Route: 048
     Dates: start: 20160420, end: 20160713

REACTIONS (21)
  - Nocturia [Unknown]
  - Oedema peripheral [Unknown]
  - Varices oesophageal [Unknown]
  - Spider naevus [Unknown]
  - Abdominal distension [Unknown]
  - Spider naevus [Unknown]
  - Nausea [Unknown]
  - Gait disturbance [Unknown]
  - Haemorrhoids [Unknown]
  - Insomnia [Unknown]
  - Tremor [Unknown]
  - Oedema peripheral [Unknown]
  - Jaundice [Unknown]
  - Hepatic encephalopathy [Unknown]
  - Myalgia [Unknown]
  - Abdominal pain [Unknown]
  - Decreased appetite [Unknown]
  - Portal hypertension [Unknown]
  - Arthralgia [Unknown]
  - Jaundice [Unknown]
  - Constipation [Unknown]

NARRATIVE: CASE EVENT DATE: 20160421
